FAERS Safety Report 7667398-2 (Version None)
Quarter: 2011Q3

REPORT INFORMATION
  Report Type: 
  Country: None (occurrence: None)
  Receive Date: 20110806
  Receipt Date: 20110302
  Transmission Date: 20111222
  Serious: No
  Sender: FDA-Public Use
  Company Number: US-ABBOTT-11P-163-0708500-00

PATIENT
  Sex: Male
  Weight: 108.96 kg

DRUGS (16)
  1. TRIBENZOR [Concomitant]
     Indication: PRODUCT USED FOR UNKNOWN INDICATION
  2. FLOMAX [Concomitant]
     Indication: PRODUCT USED FOR UNKNOWN INDICATION
  3. NIASPAN [Suspect]
     Indication: BLOOD CHOLESTEROL ABNORMAL
     Dates: end: 20110201
  4. OMEPRAZOLE [Concomitant]
     Indication: PRODUCT USED FOR UNKNOWN INDICATION
  5. FUROSEMIDE [Concomitant]
     Indication: PRODUCT USED FOR UNKNOWN INDICATION
  6. GLUCOSAMINE CHONDROITIN [Concomitant]
     Indication: PRODUCT USED FOR UNKNOWN INDICATION
  7. NIASPAN [Suspect]
     Dates: start: 20100801
  8. LOVAZA [Concomitant]
     Indication: PRODUCT USED FOR UNKNOWN INDICATION
  9. PLETAL [Concomitant]
     Indication: PRODUCT USED FOR UNKNOWN INDICATION
  10. ASPIRIN [Concomitant]
     Indication: PRODUCT USED FOR UNKNOWN INDICATION
  11. BYSTOLIC [Concomitant]
     Indication: PRODUCT USED FOR UNKNOWN INDICATION
  12. VIT B AND C [Concomitant]
     Indication: PRODUCT USED FOR UNKNOWN INDICATION
  13. SIMCOR [Suspect]
     Indication: BLOOD CHOLESTEROL ABNORMAL
     Dates: start: 20110101
  14. PLAVIX [Concomitant]
     Indication: PRODUCT USED FOR UNKNOWN INDICATION
  15. LYRICA [Concomitant]
     Indication: PRODUCT USED FOR UNKNOWN INDICATION
  16. APIDRA [Concomitant]
     Indication: PRODUCT USED FOR UNKNOWN INDICATION
     Route: 050

REACTIONS (5)
  - ERYTHEMA [None]
  - PRURITUS [None]
  - FLUSHING [None]
  - BURNING SENSATION [None]
  - RASH MACULAR [None]
